FAERS Safety Report 5955670-3 (Version None)
Quarter: 2008Q4

REPORT INFORMATION
  Report Type: 
  Country: None (occurrence: None)
  Receive Date: 20081117
  Receipt Date: 20081106
  Transmission Date: 20090506
  Serious: Yes (Hospitalization)
  Sender: FDA-Public Use
  Company Number: FR-ELI_LILLY_AND_COMPANY-FR200811001171

PATIENT
  Sex: Male

DRUGS (6)
  1. ZYPREXA [Suspect]
     Indication: PERSONALITY DISORDER
     Dosage: 15 MG, DAILY (1/D)
     Route: 048
     Dates: end: 20080701
  2. HALDOL [Concomitant]
     Indication: PERSONALITY DISORDER
     Route: 048
     Dates: end: 20080701
  3. TERCIAN [Concomitant]
     Indication: PERSONALITY DISORDER
     Route: 048
     Dates: end: 20080701
  4. NORSET [Concomitant]
     Indication: PERSONALITY DISORDER
     Route: 048
  5. NEXIUM [Concomitant]
     Indication: GASTRITIS
     Route: 048
  6. SUBUTEX [Concomitant]
     Indication: DRUG DEPENDENCE
     Route: 048

REACTIONS (4)
  - DIABETES INSIPIDUS [None]
  - DIABETIC HYPEROSMOLAR COMA [None]
  - HYPERGLYCAEMIA [None]
  - WEIGHT DECREASED [None]
